FAERS Safety Report 15783890 (Version 1)
Quarter: 2019Q1

REPORT INFORMATION
  Report Type: Spontaneous
  Country: CN (occurrence: CN)
  Receive Date: 20190102
  Receipt Date: 20190102
  Transmission Date: 20190417
  Serious: Yes (Other)
  Sender: FDA-Public Use
  Company Number: CN-ROCHE-2238461

PATIENT
  Age: 54 Year
  Sex: Female

DRUGS (5)
  1. CAPECITABINE. [Suspect]
     Active Substance: CAPECITABINE
     Indication: METASTASES TO LIVER
     Route: 065
  2. GEMCITABINE [Concomitant]
     Active Substance: GEMCITABINE\GEMCITABINE HYDROCHLORIDE
     Indication: METASTASES TO LIVER
  3. PACLITAXEL. [Concomitant]
     Active Substance: PACLITAXEL
     Indication: METASTASES TO LIVER
     Route: 065
     Dates: start: 20161227
  4. TRASTUZUMAB. [Suspect]
     Active Substance: TRASTUZUMAB
     Indication: METASTASES TO LIVER
     Route: 042
  5. LAPATINIB [Concomitant]
     Active Substance: LAPATINIB
     Indication: METASTASES TO LIVER
     Route: 065
     Dates: start: 20161227

REACTIONS (2)
  - Bone marrow failure [Unknown]
  - Palmar-plantar erythrodysaesthesia syndrome [Unknown]
